FAERS Safety Report 9260400 (Version 1)
Quarter: 2013Q2

REPORT INFORMATION
  Report Type: Spontaneous
  Country: JP (occurrence: JP)
  Receive Date: 20130429
  Receipt Date: 20130429
  Transmission Date: 20140414
  Serious: Yes (Other)
  Sender: FDA-Public Use
  Company Number: PHHY2013JP016168

PATIENT
  Age: 78 Year
  Sex: Male

DRUGS (3)
  1. EXFORGE [Suspect]
     Indication: HYPERTENSION
     Dosage: 1 DF, DAILY
     Route: 048
     Dates: start: 201207, end: 20130205
  2. BAYASPIRIN [Concomitant]
     Route: 048
  3. GASTER [Concomitant]
     Route: 048

REACTIONS (1)
  - Liver disorder [Recovered/Resolved]
